FAERS Safety Report 12238565 (Version 2)
Quarter: 2016Q2

REPORT INFORMATION
  Report Type: Spontaneous
  Country: US (occurrence: US)
  Receive Date: 20160405
  Receipt Date: 20160504
  Transmission Date: 20160815
  Serious: No
  Sender: FDA-Public Use
  Company Number: US-PFIZER INC-2016171132

PATIENT
  Age: 60 Year
  Sex: Female

DRUGS (6)
  1. TIZANIDINE. [Suspect]
     Active Substance: TIZANIDINE
     Indication: CEREBROVASCULAR ACCIDENT
     Dosage: UNK, 2X/DAY
     Dates: start: 20001125
  2. COUMADIN [Suspect]
     Active Substance: WARFARIN SODIUM
     Indication: CEREBROVASCULAR ACCIDENT
     Dosage: UNK (10 MG S + THRS, 8 MG M, T, W F + SAT)
     Dates: start: 20011125
  3. CITALOPRAM [Suspect]
     Active Substance: CITALOPRAM HYDROBROMIDE
     Dosage: 20 MG, 1X/DAY
  4. RANITIDINE. [Concomitant]
     Active Substance: RANITIDINE
     Dosage: UNK, 3X/DAY
     Dates: start: 2002
  5. EFFEXOR XR [Suspect]
     Active Substance: VENLAFAXINE HYDROCHLORIDE
     Indication: CEREBROVASCULAR ACCIDENT
     Dosage: 75 MG, 3X/DAY
     Dates: start: 20001125
  6. CLONAZEPAM. [Suspect]
     Active Substance: CLONAZEPAM
     Indication: CEREBROVASCULAR ACCIDENT
     Dosage: UNK, 2X/DAY
     Dates: start: 20001125

REACTIONS (7)
  - Limb discomfort [Recovered/Resolved]
  - Feeling cold [Recovered/Resolved]
  - Muscle spasms [Recovered/Resolved]
  - Insomnia [Recovered/Resolved]
  - Nightmare [Recovered/Resolved]
  - Muscle twitching [Recovered/Resolved]
  - Hyperhidrosis [Recovered/Resolved]

NARRATIVE: CASE EVENT DATE: 201603
